FAERS Safety Report 15616987 (Version 2)
Quarter: 2018Q4

REPORT INFORMATION
  Report Type: Spontaneous
  Country: ES (occurrence: ES)
  Receive Date: 20181114
  Receipt Date: 20181221
  Transmission Date: 20190205
  Serious: Yes (Hospitalization)
  Sender: FDA-Public Use
  Company Number: ES-PFIZER INC-2018462236

PATIENT
  Age: 47 Year
  Sex: Male
  Weight: 72.5 kg

DRUGS (4)
  1. ALPRAZOLAM. [Suspect]
     Active Substance: ALPRAZOLAM
     Dosage: 1 MG, 1X/DAY (DOSAGE FORM: UNSPECIFIED)
     Route: 065
  2. RISPERDAL [Suspect]
     Active Substance: RISPERIDONE
     Dosage: 2 MG, 1X/DAY (DOSAGE FORM: UNSPECIFIED)
     Route: 048
  3. CALCIFEDIOL [Suspect]
     Active Substance: CALCIFEDIOL
     Dosage: UNK, MONTHLY (DOSAGE FORM: UNSPECIFIED)
     Route: 065
  4. TREVICTA [Suspect]
     Active Substance: PALIPERIDONE PALMITATE
     Dosage: 700 MG, (2 DOSES)
     Route: 030
     Dates: start: 20180921

REACTIONS (6)
  - Pneumonia [Unknown]
  - Nausea [Unknown]
  - Wrong product administered [Unknown]
  - Respiratory disorder [Unknown]
  - Cardiac disorder [Unknown]
  - Encephalopathy [Recovering/Resolving]

NARRATIVE: CASE EVENT DATE: 20180921
